FAERS Safety Report 15663671 (Version 2)
Quarter: 2019Q1

REPORT INFORMATION
  Report Type: Spontaneous
  Country: FR (occurrence: FR)
  Receive Date: 20181128
  Receipt Date: 20190301
  Transmission Date: 20190417
  Serious: Yes (Death, Other)
  Sender: FDA-Public Use
  Company Number: FR-B.I. PHARMACEUTICALS,INC./RIDGEFIELD-2018-BI-057152

PATIENT
  Age: 86 Year
  Sex: Male
  Weight: 80 kg

DRUGS (2)
  1. PRADAXA [Suspect]
     Active Substance: DABIGATRAN ETEXILATE MESYLATE
     Indication: ATRIAL FIBRILLATION
     Route: 048
     Dates: end: 20160624
  2. HEPARIN [Suspect]
     Active Substance: HEPARIN SODIUM
     Indication: PRODUCT USED FOR UNKNOWN INDICATION
     Route: 065

REACTIONS (5)
  - Coronary bypass thrombosis [Fatal]
  - Cardiogenic shock [Fatal]
  - Gastrointestinal haemorrhage [Fatal]
  - Heparin-induced thrombocytopenia [Fatal]
  - Procoagulant therapy [Unknown]

NARRATIVE: CASE EVENT DATE: 20160624
